FAERS Safety Report 20136742 (Version 1)
Quarter: 2021Q4

REPORT INFORMATION
  Report Type: Report from Study
  Country: EG (occurrence: EG)
  Receive Date: 20211201
  Receipt Date: 20211201
  Transmission Date: 20220303
  Serious: Yes (Other)
  Sender: FDA-Public Use
  Company Number: EG-NOVARTISPH-NVSC2021EG270708

PATIENT
  Sex: Female

DRUGS (4)
  1. GLIVEC [Suspect]
     Active Substance: IMATINIB MESYLATE
     Indication: Chronic myeloid leukaemia
     Dosage: 4 DOSAGE FORM, QD
     Route: 048
     Dates: start: 2019, end: 202109
  2. TASIGNA [Suspect]
     Active Substance: NILOTINIB
     Indication: Chronic myeloid leukaemia
     Dosage: 4 DOSAGE FORM, QD
     Route: 048
     Dates: start: 202109
  3. OLFEN [Concomitant]
     Indication: Neuropathy peripheral
     Dosage: UNK
     Route: 065
  4. OLFEN [Concomitant]
     Indication: Analgesic therapy

REACTIONS (2)
  - Blindness [Not Recovered/Not Resolved]
  - Polymerase chain reaction [Not Recovered/Not Resolved]

NARRATIVE: CASE EVENT DATE: 20190101
